FAERS Safety Report 9145126 (Version 1)
Quarter: 2013Q1

REPORT INFORMATION
  Report Type: Spontaneous
  Country: TW (occurrence: TW)
  Receive Date: 20130307
  Receipt Date: 20130307
  Transmission Date: 20140127
  Serious: Yes (Death, Hospitalization, Other)
  Sender: FDA-Public Use
  Company Number: TW-PAR PHARMACEUTICAL, INC-2013SCPR005792

PATIENT
  Sex: 0

DRUGS (12)
  1. CLONAZEPAM [Suspect]
     Indication: TREMOR
     Dosage: 0.5 MG, BID
     Route: 048
  2. ESCITALOPRAM [Concomitant]
     Indication: PRODUCT USED FOR UNKNOWN INDICATION
     Dosage: 10 MG, BEDTIME
     Route: 048
  3. RISPERIDONE [Concomitant]
     Indication: PRODUCT USED FOR UNKNOWN INDICATION
     Dosage: 1 MG, HS
     Route: 048
  4. DIPYRIDAMOLE [Concomitant]
     Indication: PRODUCT USED FOR UNKNOWN INDICATION
     Dosage: 25 MG, BID
     Route: 048
  5. FLUNARIZINE [Concomitant]
     Indication: PRODUCT USED FOR UNKNOWN INDICATION
     Dosage: 5 MG, HS
     Route: 048
  6. NOREPINEPHRINE [Concomitant]
     Indication: SEPTIC SHOCK
     Dosage: UNK, UNKNOWN
     Route: 065
  7. DOXYCYCLINE [Concomitant]
     Indication: STENOTROPHOMONAS INFECTION
     Dosage: 100 MG, EVERY 12 HOURS
     Route: 048
  8. DOXYCYCLINE [Concomitant]
     Indication: PSEUDOMONAS INFECTION
  9. DIPHENHYDRAMINE [Concomitant]
     Indication: RASH GENERALISED
     Dosage: 30 MG, OD
  10. AMIODARONE [Concomitant]
     Indication: PRODUCT USED FOR UNKNOWN INDICATION
     Dosage: 200 MG, TID
     Route: 048
  11. FUROSEMIDE [Concomitant]
     Indication: PRODUCT USED FOR UNKNOWN INDICATION
     Dosage: 20 MG, QD
     Route: 042
  12. CEFTAZIDIME [Concomitant]
     Indication: PNEUMONIA
     Dosage: 2 G, EVERY 12 HOURS
     Route: 042

REACTIONS (3)
  - Septic shock [Fatal]
  - Death [Fatal]
  - Dermatitis bullous [Recovering/Resolving]
